FAERS Safety Report 8315640-7 (Version None)
Quarter: 2012Q2

REPORT INFORMATION
  Report Type: 
  Country: None (occurrence: None)
  Receive Date: 20120426
  Receipt Date: 20120417
  Transmission Date: 20120825
  Serious: Yes (Other)
  Sender: FDA-Public Use
  Company Number: BR-ROCHE-729125

PATIENT
  Sex: Female
  Weight: 75 kg

DRUGS (14)
  1. LEVOTHYROXINE SODIUM [Concomitant]
     Indication: THYROID DISORDER
  2. ROHYPNOL [Concomitant]
     Indication: SLEEP DISORDER THERAPY
  3. ATORVASTATIN CALCIUM [Concomitant]
  4. CORTICOSTEROID NOS [Concomitant]
  5. ANALGESICS NOS [Concomitant]
     Indication: ARTHRALGIA
  6. MABTHERA [Suspect]
     Indication: RHEUMATOID ARTHRITIS
     Dosage: FORM: INFUSION. DOSE: 500MG/50ML
     Route: 042
     Dates: start: 20100405, end: 20100420
  7. LIPITOR [Concomitant]
     Indication: BLOOD CHOLESTEROL ABNORMAL
  8. MABTHERA [Suspect]
  9. CORTISONE ACETATE [Suspect]
     Indication: HYPERSENSITIVITY
     Dosage: OTHER INDICATION: PRE-MEDICATION
     Route: 065
  10. AMOXICILLIN [Concomitant]
  11. MABTHERA [Suspect]
  12. MABTHERA [Suspect]
  13. INDAPEN [Concomitant]
  14. MABTHERA [Suspect]

REACTIONS (20)
  - HYPERTENSION [None]
  - OROPHARYNGEAL PAIN [None]
  - SWELLING [None]
  - FOOT DEFORMITY [None]
  - BLOOD CHOLESTEROL INCREASED [None]
  - OEDEMA PERIPHERAL [None]
  - WEIGHT INCREASED [None]
  - ARTHRALGIA [None]
  - JOINT EFFUSION [None]
  - BLOOD CHOLESTEROL ABNORMAL [None]
  - MALAISE [None]
  - DYSPNOEA [None]
  - SOMNOLENCE [None]
  - HYPERSENSITIVITY [None]
  - NASOPHARYNGITIS [None]
  - COUGH [None]
  - WEIGHT LOSS POOR [None]
  - NAUSEA [None]
  - BLOOD IRON DECREASED [None]
  - LARYNGEAL OEDEMA [None]
